FAERS Safety Report 8839910 (Version 1)
Quarter: 2012Q4

REPORT INFORMATION
  Report Type: Spontaneous
  Country: US (occurrence: None)
  Receive Date: 20121012
  Receipt Date: 20121012
  Transmission Date: 20130627
  Serious: No
  Sender: FDA-Public Use
  Company Number: None

PATIENT
  Age: 10 Year
  Sex: Male
  Weight: 29.48 kg

DRUGS (1)
  1. MONTELUKAST SODIUM [Suspect]
     Indication: ASTHMA
     Dosage: one at bedtime
     Route: 048
     Dates: start: 20121005, end: 20121010

REACTIONS (4)
  - Chromaturia [None]
  - Back pain [None]
  - Abdominal pain upper [None]
  - Product substitution issue [None]
